FAERS Safety Report 10412645 (Version 1)
Quarter: 2014Q3

REPORT INFORMATION
  Report Type: Spontaneous
  Country: FR (occurrence: None)
  Receive Date: 20140825
  Receipt Date: 20140825
  Transmission Date: 20150326
  Serious: Yes (Death)
  Sender: FDA-Public Use
  Company Number: 2014JUB00095

PATIENT
  Age: 75 Year
  Sex: Female

DRUGS (3)
  1. PREDNISONE. [Suspect]
     Active Substance: PREDNISONE
     Indication: ACQUIRED HAEMOPHILIA
  2. RITUXIMAB (RITUXIMAB) [Suspect]
     Active Substance: RITUXIMAB
     Indication: ACQUIRED HAEMOPHILIA
  3. MEHTYLPREDNISOLONE (METHYLPREDNISOLONE) [Concomitant]

REACTIONS (4)
  - Enterobacter pneumonia [None]
  - Pneumonia pseudomonal [None]
  - Candida pneumonia [None]
  - Pneumocystis jirovecii pneumonia [None]
